FAERS Safety Report 6356329-3 (Version None)
Quarter: 2009Q3

REPORT INFORMATION
  Report Type: 
  Country: None (occurrence: None)
  Receive Date: 20090915
  Receipt Date: 20090902
  Transmission Date: 20100115
  Serious: Yes (Hospitalization, Other)
  Sender: FDA-Public Use
  Company Number: US-PFIZER INC-2007029530

PATIENT
  Sex: Female

DRUGS (7)
  1. CHANTIX [Suspect]
     Dates: start: 20070331
  2. PLAVIX [Suspect]
     Indication: ANTICOAGULANT THERAPY
  3. POTASSIUM CHLORIDE [Concomitant]
  4. BENICAR [Concomitant]
  5. CRESTOR [Concomitant]
  6. ZETIA [Concomitant]
  7. TOPROL-XL [Concomitant]

REACTIONS (35)
  - ABDOMINAL PAIN UPPER [None]
  - ARTERIAL OCCLUSIVE DISEASE [None]
  - BACK PAIN [None]
  - BLOOD PRESSURE ABNORMAL [None]
  - BLOOD PRESSURE INCREASED [None]
  - BLOOD URINE PRESENT [None]
  - CARDIAC DISORDER [None]
  - CAROTID ARTERY OCCLUSION [None]
  - CHAPPED LIPS [None]
  - CORONARY ARTERY OCCLUSION [None]
  - DIARRHOEA [None]
  - DISORIENTATION [None]
  - DRUG INEFFECTIVE [None]
  - FACIAL PAIN [None]
  - FALL [None]
  - FEELING ABNORMAL [None]
  - GRIP STRENGTH DECREASED [None]
  - HAEMORRHAGE [None]
  - HEADACHE [None]
  - MUSCLE SPASMS [None]
  - NAUSEA [None]
  - NEPHROLITHIASIS [None]
  - NIGHTMARE [None]
  - PAIN [None]
  - PERIPHERAL COLDNESS [None]
  - PYREXIA [None]
  - RIB FRACTURE [None]
  - SUICIDAL IDEATION [None]
  - SURGERY [None]
  - SUTURE INSERTION [None]
  - THIRST [None]
  - TONGUE DRY [None]
  - UNEVALUABLE EVENT [None]
  - VISION BLURRED [None]
  - VOMITING [None]
